FAERS Safety Report 24242019 (Version 1)
Quarter: 2024Q3

REPORT INFORMATION
  Report Type: Spontaneous
  Country: DE (occurrence: DE)
  Receive Date: 20240823
  Receipt Date: 20240823
  Transmission Date: 20241016
  Serious: Yes (Hospitalization)
  Sender: REGENERON
  Company Number: DE-BAYER-2024A117187

PATIENT
  Age: 84 Year
  Sex: Female

DRUGS (1)
  1. EYLEA [Suspect]
     Active Substance: AFLIBERCEPT
     Indication: Age-related macular degeneration
     Dosage: 2 MG, RIGHT EYE, 40MG/ML
     Route: 031
     Dates: start: 20240715, end: 20240715

REACTIONS (1)
  - Panophthalmitis [Unknown]

NARRATIVE: CASE EVENT DATE: 20240716
